FAERS Safety Report 8246431-3 (Version None)
Quarter: 2012Q1

REPORT INFORMATION
  Report Type: 
  Country: None (occurrence: None)
  Receive Date: 20120329
  Receipt Date: 20120329
  Transmission Date: 20120608
  Serious: Yes (Other)
  Sender: FDA-Public Use
  Company Number: None

PATIENT

DRUGS (1)
  1. NAPROXEN (ALEVE) [Suspect]
     Indication: PRODUCT TAMPERING

REACTIONS (3)
  - PRODUCT TAMPERING [None]
  - PRODUCT CONTAINER SEAL ISSUE [None]
  - PRODUCT CONTAINER ISSUE [None]
